FAERS Safety Report 4550639-8 (Version None)
Quarter: 2004Q4

REPORT INFORMATION
  Report Type: 
  Country: None (occurrence: None)
  Receive Date: 20041227
  Receipt Date: 20040902
  Transmission Date: 20050328
  Serious: No
  Sender: FDA-Public Use
  Company Number: 04P-163-0272448-00

PATIENT
  Age: 27 Year
  Sex: Female
  Weight: 81.6475 kg

DRUGS (8)
  1. HUMIRA [Suspect]
     Indication: RHEUMATOID ARTHRITIS
     Dosage: 40 MG, 1 IN 2 WK, SUBCUTANEOUS
     Route: 058
     Dates: start: 20040829
  2. CETIRIZINE HCL [Concomitant]
  3. SINGULAIR [Concomitant]
  4. PREDNISONE [Concomitant]
  5. GLUCOPHAGE [Concomitant]
  6. SULFASALAZINE [Concomitant]
  7. CELECOXIB [Concomitant]
  8. FOLIC ACID [Concomitant]

REACTIONS (2)
  - FEELING JITTERY [None]
  - TREMOR [None]
